FAERS Safety Report 6968693-2 (Version None)
Quarter: 2010Q3

REPORT INFORMATION
  Report Type: 
  Country: None (occurrence: None)
  Receive Date: 20100907
  Receipt Date: 20100831
  Transmission Date: 20110219
  Serious: Yes (Hospitalization)
  Sender: FDA-Public Use
  Company Number: CA-GENZYME-FABR-1001549

PATIENT

DRUGS (17)
  1. FABRAZYME [Suspect]
     Indication: FABRY'S DISEASE
     Dosage: 85 MG, UNK
     Route: 042
     Dates: start: 20071219, end: 20090827
  2. FABRAZYME [Suspect]
     Dosage: 85 MG, UNK
     Route: 042
     Dates: start: 20090909
  3. EFFEXOR [Concomitant]
     Indication: DEPRESSION
     Dosage: UNK
  4. INDAPAMIDE [Concomitant]
     Indication: HYPERTENSION
     Dosage: UNK
  5. CHOLESTEROL- AND TRIGLYCERIDE REDUCERS [Concomitant]
     Indication: HYPERCHOLESTEROLAEMIA
     Dosage: UNK
  6. FOLIC ACID [Concomitant]
     Indication: DEPRESSION
     Dosage: UNK
  7. METHOTREXATE [Concomitant]
     Indication: RHEUMATOID ARTHRITIS
     Dosage: UNK
  8. LEVOTHYROXINE SODIUM [Concomitant]
     Indication: HYPOTHYROIDISM
     Dosage: UNK
  9. CLONIDINE [Concomitant]
     Indication: HYPERTENSION
     Dosage: UNK
  10. NEXIUM [Concomitant]
     Indication: PRODUCT USED FOR UNKNOWN INDICATION
     Dosage: UNK
  11. METFORMIN [Concomitant]
     Indication: DIABETES MELLITUS
     Dosage: UNK
  12. CLONAZEPAM [Concomitant]
     Indication: DEPRESSION
     Dosage: UNK
  13. TRAZODONE HCL [Concomitant]
     Indication: DEPRESSION
     Dosage: UNK
  14. GLYBURIDE [Concomitant]
     Indication: DIABETES MELLITUS
     Dosage: 10 MG, QD
  15. IRBESARTAN [Concomitant]
     Indication: HYPERTENSION
     Dosage: 75 UNK, UNK
  16. RALOXIFENE HCL [Concomitant]
     Indication: OSTEOPOROSIS
     Dosage: UNK
  17. SODIUM POLYSTYRENE SULFONATE [Concomitant]
     Indication: HYPERKALAEMIA
     Dosage: UNK

REACTIONS (1)
  - MYOCARDIAL INFARCTION [None]
